FAERS Safety Report 6359630-2 (Version None)
Quarter: 2009Q3

REPORT INFORMATION
  Report Type: 
  Country: None (occurrence: None)
  Receive Date: 20090917
  Receipt Date: 20090908
  Transmission Date: 20100115
  Serious: Yes (Life-Threatening)
  Sender: FDA-Public Use
  Company Number: US-BAXTER-2009BH014093

PATIENT
  Sex: Female

DRUGS (3)
  1. CYCLOPHOSPHAMIDE [Suspect]
     Indication: CENTRAL NERVOUS SYSTEM NEOPLASM
     Route: 042
  2. ETOPOSIDE [Suspect]
     Indication: CENTRAL NERVOUS SYSTEM NEOPLASM
     Route: 042
  3. CARBOPLATIN [Suspect]
     Route: 042

REACTIONS (1)
  - GLIOBLASTOMA [None]
